FAERS Safety Report 21116127 (Version 8)
Quarter: 2023Q1

REPORT INFORMATION
  Report Type: Report from Study
  Country: DE (occurrence: DE)
  Receive Date: 20220721
  Receipt Date: 20230228
  Transmission Date: 20230417
  Serious: Yes (Hospitalization)
  Sender: FDA-Public Use
  Company Number: DE-SA-SAC20220715001985

PATIENT
  Age: 51 Year
  Sex: Male

DRUGS (7)
  1. CEMIPLIMAB [Suspect]
     Active Substance: CEMIPLIMAB
     Indication: Malignant melanoma
     Dosage: 350 MG(INFUSION RATE 214MG/H), Q3W, INTENDED DOSE (MG): 350
     Route: 041
     Dates: start: 20220712, end: 20220712
  2. THOR-707 [Suspect]
     Active Substance: THOR-707
     Indication: Malignant melanoma
     Dosage: 1760 UG(INFUSION RATE 101.7 MG/H), Q3W, INTENDED DOSE (UG/KG): 16
     Route: 042
     Dates: start: 20220712, end: 20220712
  3. PANTOZOL [Concomitant]
     Active Substance: PANTOPRAZOLE SODIUM
     Indication: Prophylaxis
     Dosage: UNK
     Route: 048
     Dates: start: 20220713
  4. ENOXAPARIN SODIUM [Concomitant]
     Active Substance: ENOXAPARIN SODIUM
     Indication: Prophylaxis
     Dosage: UNK
     Route: 058
     Dates: start: 20220713
  5. ACETAMINOPHEN [Concomitant]
     Active Substance: ACETAMINOPHEN
     Indication: Prophylaxis
     Dosage: UNK
     Route: 042
     Dates: start: 20220712, end: 20220712
  6. DIMETHINDENE MALEATE [Concomitant]
     Active Substance: DIMETHINDENE MALEATE
     Indication: Prophylaxis
     Dosage: UNK
     Route: 042
     Dates: start: 20220712, end: 20220712
  7. ONDANSETRON [Concomitant]
     Active Substance: ONDANSETRON
     Indication: Prophylaxis
     Dosage: UNK
     Route: 040
     Dates: start: 20220712, end: 20220712

REACTIONS (2)
  - Cytokine release syndrome [Recovered/Resolved]
  - Immune-mediated hepatitis [Recovered/Resolved]

NARRATIVE: CASE EVENT DATE: 20220713
